FAERS Safety Report 9535938 (Version 2)
Quarter: 2014Q1

REPORT INFORMATION
  Report Type: Spontaneous
  Country: US (occurrence: None)
  Receive Date: 20130507
  Receipt Date: 20131226
  Transmission Date: 20141002
  Serious: Yes (Hospitalization, Other)
  Sender: FDA-Public Use
  Company Number: PHEH2013US002373

PATIENT
  Age: 31 Year
  Sex: Male
  Weight: 131 kg

DRUGS (11)
  1. AFINITOR (RAD) UNKNOWN [Suspect]
     Indication: TUBEROUS SCLEROSIS
     Route: 048
     Dates: start: 20121220, end: 20130216
  2. NORVASC (AMLODIPINE BESILATE) [Concomitant]
  3. BUSPAR (BUSPIRONE HYDROCHLORIDE) [Concomitant]
  4. VITAMIN B12 (CYANOCOBALAMIN) [Concomitant]
  5. FOLIC ACID (FOLIC ACID) [Concomitant]
  6. GEODON (ZIPRASIDONE HYDROCHLORIDE) [Concomitant]
  7. LITHIUM (LITHIUM) [Concomitant]
  8. L-LYSINE (LYSINE) [Concomitant]
  9. COREG (CARVEDILOL) [Concomitant]
  10. PERIACTIN (CYPROHEPTADINE HYDROCHLORIDE) [Concomitant]
  11. DUCOLAX (BISACODYL) [Concomitant]

REACTIONS (19)
  - Renal failure [None]
  - Pneumonia [None]
  - Ear pain [None]
  - Red blood cell count abnormal [None]
  - Eating disorder [None]
  - Hypersomnia [None]
  - Peripheral coldness [None]
  - Yellow skin [None]
  - Pain in jaw [None]
  - Rash [None]
  - Stomatitis [None]
  - Rash pruritic [None]
  - Asthenia [None]
  - Weight decreased [None]
  - Otitis externa [None]
  - Vomiting [None]
  - Nausea [None]
  - Blood urea increased [None]
  - Blood creatinine increased [None]
